FAERS Safety Report 14815599 (Version 1)
Quarter: 2018Q2

REPORT INFORMATION
  Report Type: Spontaneous
  Country: US (occurrence: US)
  Receive Date: 20180426
  Receipt Date: 20180426
  Transmission Date: 20180711
  Serious: Yes (Hospitalization)
  Sender: FDA-Public Use
  Company Number: US-OTSUKA-2018_009500

PATIENT
  Sex: Male

DRUGS (7)
  1. ABILIFY [Suspect]
     Active Substance: ARIPIPRAZOLE
     Dosage: UNK, QD (13 YEARS AGO)
     Route: 048
  2. ABILIFY [Suspect]
     Active Substance: ARIPIPRAZOLE
     Indication: MAJOR DEPRESSION
     Dosage: 2 MG, UNK (TITRATED DOWN FROM 10 MG TO 2 MG)
     Route: 065
     Dates: start: 20171107
  3. ABILIFY [Suspect]
     Active Substance: ARIPIPRAZOLE
     Dosage: (5-10 MG), QD
     Route: 065
  4. ARIPIPRAZOLE. [Suspect]
     Active Substance: ARIPIPRAZOLE
     Indication: PRODUCT USED FOR UNKNOWN INDICATION
     Dosage: 7 MG, UNK (ONE 5 MG TABLET AND ONE 2 MG TABLET)
     Route: 065
     Dates: start: 2017
  5. ABILIFY [Suspect]
     Active Substance: ARIPIPRAZOLE
     Dosage: 20 MG, UNK
     Route: 065
     Dates: start: 201711
  6. ABILIFY [Suspect]
     Active Substance: ARIPIPRAZOLE
     Dosage: FLUCTUATED FROM 2MG TO 20MG
     Route: 065
  7. ARIPIPRAZOLE. [Suspect]
     Active Substance: ARIPIPRAZOLE
     Indication: PRODUCT USED FOR UNKNOWN INDICATION
     Dosage: 10 MG, UNK (AMNEAL)
     Route: 065
     Dates: start: 2017

REACTIONS (8)
  - Fatigue [Not Recovered/Not Resolved]
  - Product substitution issue [Unknown]
  - Intentional product use issue [Unknown]
  - Wrong technique in product usage process [Unknown]
  - Weight increased [Unknown]
  - Insomnia [Not Recovered/Not Resolved]
  - Dizziness [Not Recovered/Not Resolved]
  - Delusion [Recovered/Resolved]

NARRATIVE: CASE EVENT DATE: 2017
